FAERS Safety Report 6572932-X (Version None)
Quarter: 2010Q1

REPORT INFORMATION
  Report Type: 
  Country: None (occurrence: None)
  Receive Date: 20100208
  Receipt Date: 20100129
  Transmission Date: 20100710
  Serious: Yes (Death)
  Sender: FDA-Public Use
  Company Number: PT-BIOGENIDEC-2010BI002403

PATIENT
  Age: 46 Year
  Sex: Male

DRUGS (2)
  1. TYSABRI [Suspect]
     Indication: MULTIPLE SCLEROSIS
     Route: 042
     Dates: start: 20081210, end: 20090630
  2. SILDENAFIL CITRATE [Concomitant]
     Indication: ERECTILE DYSFUNCTION
     Route: 048

REACTIONS (1)
  - SUDDEN DEATH [None]
